FAERS Safety Report 17048669 (Version 1)
Quarter: 2019Q4

REPORT INFORMATION
  Report Type: Spontaneous
  Country: US (occurrence: US)
  Receive Date: 20191118
  Receipt Date: 20191118
  Transmission Date: 20200122
  Serious: Yes (Death)
  Sender: FDA-Public Use
  Company Number: None

PATIENT
  Age: 77 Year
  Sex: Female

DRUGS (1)
  1. MOXIFLOXACIN 1.6MG/ML [Suspect]
     Active Substance: MOXIFLOXACIN HYDROCHLORIDE
     Indication: INFECTION PROPHYLAXIS
     Dosage: ?          OTHER FREQUENCY:ONCE;?
     Route: 031

REACTIONS (2)
  - Intra-ocular injection complication [None]
  - Eye opacity [None]

NARRATIVE: CASE EVENT DATE: 20191114
